FAERS Safety Report 8984411 (Version 1)
Quarter: 2012Q4

REPORT INFORMATION
  Report Type: Spontaneous
  Country: IT (occurrence: None)
  Receive Date: 20121217
  Receipt Date: 20121217
  Transmission Date: 20130627
  Serious: Yes (Other)
  Sender: FDA-Public Use
  Company Number: GER/ITL/12/0027022

PATIENT
  Age: 46 Year
  Sex: Male
  Weight: 104 kg

DRUGS (2)
  1. CITALOPRAM (CITALOPRAM) [Suspect]
     Indication: DEPRESSION
  2. PEGYLATED INTERFERON ALFA-2B (PEGYLATED INTERFERON ALFA-2B) [Suspect]
     Indication: CHRONIC HEPATITIS C
     Dosage: Subcutaneous
10  W
     Route: 058

REACTIONS (2)
  - Depression [None]
  - Alopecia universalis [None]
